FAERS Safety Report 22609350 (Version 1)
Quarter: 2023Q2

REPORT INFORMATION
  Report Type: Spontaneous
  Country: US (occurrence: US)
  Receive Date: 20230616
  Receipt Date: 20230616
  Transmission Date: 20230721
  Serious: No
  Sender: FDA-Public Use
  Company Number: US-PFIZER INC-202300221667

PATIENT
  Age: 11 Year
  Sex: Male
  Weight: 24.95 kg

DRUGS (1)
  1. GENOTROPIN [Suspect]
     Active Substance: SOMATROPIN
     Indication: Short stature
     Dosage: 1.2 MG, 1X/DAY [1.2MG, IN THE EVENING JUST BEFORE BED, TRICEPS OR OUTER THIGH VARIES EVERY DAY]
     Dates: start: 2022

REACTIONS (5)
  - Therapeutic product effect incomplete [Unknown]
  - Device malfunction [Unknown]
  - Device breakage [Unknown]
  - Drug dose omission by device [Unknown]
  - Device use issue [Unknown]

NARRATIVE: CASE EVENT DATE: 20230601
